FAERS Safety Report 4334130-X (Version None)
Quarter: 2004Q2

REPORT INFORMATION
  Report Type: 
  Country: None (occurrence: None)
  Receive Date: 20040405
  Receipt Date: 20040318
  Transmission Date: 20050107
  Serious: Yes (Hospitalization)
  Sender: FDA-Public Use
  Company Number: 04H-163-0254234-00

PATIENT
  Age: 70 Year
  Sex: Female

DRUGS (2)
  1. MARCAINE 0.5% INJECTION, USP (BUPIVACAINE HYDROCHLORIDE INJECTION) (BU [Suspect]
     Indication: EXOSTOSIS
     Dosage: 2 CC, ONCE, SUBCUTANEOUS
     Route: 058
     Dates: start: 20040301, end: 20040301
  2. BETAMETHASONE SODIUM PHOSPHATE/BETAMETHASONE ACETATE [Suspect]
     Indication: EXOSTOSIS
     Dosage: 1 CC, ONCE, SUBCUTANEOUS
     Route: 058
     Dates: start: 20040301, end: 20040301

REACTIONS (1)
  - MYOCARDIAL INFARCTION [None]
